FAERS Safety Report 7197720-5 (Version None)
Quarter: 2010Q4

REPORT INFORMATION
  Report Type: 
  Country: None (occurrence: None)
  Receive Date: 20101227
  Receipt Date: 20090507
  Transmission Date: 20110411
  Serious: Yes (Other)
  Sender: FDA-Public Use
  Company Number: EG-GENZYME-CERZ-1001726

PATIENT

DRUGS (1)
  1. CEREZYME [Suspect]
     Indication: GAUCHER'S DISEASE
     Dosage: 90 U/KG, Q2W
     Route: 042

REACTIONS (1)
  - DISEASE PROGRESSION [None]
